FAERS Safety Report 19800763 (Version 1)
Quarter: 2021Q3

REPORT INFORMATION
  Report Type: Spontaneous
  Country: US (occurrence: US)
  Receive Date: 20210907
  Receipt Date: 20210907
  Transmission Date: 20211014
  Serious: No
  Sender: FDA-Public Use
  Company Number: US-PERRIGO-21US008821

PATIENT
  Age: 59 Year
  Sex: Male
  Weight: 165.53 kg

DRUGS (2)
  1. TRIAMCINOLONE ACETONIDE. [Suspect]
     Active Substance: TRIAMCINOLONE ACETONIDE
     Indication: NASAL CONGESTION
     Dosage: 2 SPRAYS EACH NOSTRIL, SINGLE
     Route: 045
     Dates: start: 20210621, end: 20210621
  2. IBUPROFEN. [Concomitant]
     Active Substance: IBUPROFEN
     Indication: PRODUCT USED FOR UNKNOWN INDICATION
     Dosage: UNKNOWN, UNKNOWN
     Route: 065
     Dates: start: 202106

REACTIONS (3)
  - Epistaxis [Recovered/Resolved]
  - Headache [Unknown]
  - Ear pain [Recovering/Resolving]

NARRATIVE: CASE EVENT DATE: 20210621
